FAERS Safety Report 14320723 (Version 3)
Quarter: 2019Q2

REPORT INFORMATION
  Report Type: Report from Study
  Country: None (occurrence: AU)
  Receive Date: 20171223
  Receipt Date: 20190427
  Transmission Date: 20190711
  Serious: Yes (Hospitalization, Other)
  Sender: FDA-Public Use
  Company Number: AU-ABBVIE-16P-008-1702054-00

PATIENT
  Sex: Female

DRUGS (9)
  1. DUODOPA [Suspect]
     Active Substance: CARBIDOPA\LEVODOPA
     Dosage: CONTINUOUS RATE 3.9 ML/HR
     Route: 050
  2. DUODOPA [Suspect]
     Active Substance: CARBIDOPA\LEVODOPA
     Dosage: 6.0MLS/HR, 3-4*2 ML BOLUSES/DAY
     Route: 050
  3. DUODOPA [Suspect]
     Active Substance: CARBIDOPA\LEVODOPA
     Dosage: 4.6MLS/HOUR, 14 HOUR INFUSION
     Route: 050
  4. SINEMET CR [Concomitant]
     Active Substance: CARBIDOPA\LEVODOPA
     Indication: PRODUCT USED FOR UNKNOWN INDICATION
     Dosage: NOCTE
  5. DUODOPA [Suspect]
     Active Substance: CARBIDOPA\LEVODOPA
     Dosage: 4.4MLS/HR, 4 BOLUSES/DAY, 0800-2200
     Route: 050
  6. DUODOPA [Suspect]
     Active Substance: CARBIDOPA\LEVODOPA
     Dosage: CONTINUOUS RATE 4.1 ML/HR
     Route: 050
  7. DUODOPA [Suspect]
     Active Substance: CARBIDOPA\LEVODOPA
     Dosage: 4.8MLS/HR, 4 BOLUSES/DAY,?0800-2200
     Route: 050
  8. DUODOPA [Suspect]
     Active Substance: CARBIDOPA\LEVODOPA
     Dosage: 100ML GEL CASSETTE
     Route: 050
  9. DUODOPA [Suspect]
     Active Substance: CARBIDOPA\LEVODOPA
     Indication: PARKINSON^S DISEASE
     Dosage: 16 HOUR INFUSION
     Route: 050
     Dates: start: 20150908

REACTIONS (27)
  - Dyskinesia [Unknown]
  - Bradykinesia [Unknown]
  - Nausea [Unknown]
  - Intestinal obstruction [Unknown]
  - Back pain [Recovering/Resolving]
  - Fatigue [Unknown]
  - Freezing phenomenon [Recovering/Resolving]
  - Hallucination [Unknown]
  - Sciatica [Recovering/Resolving]
  - Pain [Unknown]
  - Gait disturbance [Not Recovered/Not Resolved]
  - Balance disorder [Unknown]
  - On and off phenomenon [Unknown]
  - Arthralgia [Not Recovered/Not Resolved]
  - Therapeutic product effect decreased [Unknown]
  - Stoma site infection [Unknown]
  - Gait disturbance [Unknown]
  - Malaise [Unknown]
  - Speech disorder [Unknown]
  - Foot deformity [Unknown]
  - Stoma site extravasation [Unknown]
  - Dysstasia [Not Recovered/Not Resolved]
  - Muscle rigidity [Unknown]
  - Mobility decreased [Not Recovered/Not Resolved]
  - Muscle spasms [Unknown]
  - Stoma site discharge [Unknown]
  - Therapeutic product effect incomplete [Unknown]
